FAERS Safety Report 10005360 (Version 2)
Quarter: 2014Q1

REPORT INFORMATION
  Report Type: Report from Study
  Country: DE (occurrence: DE)
  Receive Date: 20140312
  Receipt Date: 20140312
  Transmission Date: 20141002
  Serious: Yes (Hospitalization)
  Sender: FDA-Public Use
  Company Number: PHHO2014DE003267

PATIENT
  Sex: 0

DRUGS (3)
  1. CERTICAN [Suspect]
     Indication: RENAL TRANSPLANT
     Dosage: 2.5 MG, BID (PER BLOOD LEVEL)
     Route: 048
     Dates: start: 20121211
  2. MYFORTIC [Suspect]
     Indication: RENAL TRANSPLANT
     Dosage: 180 MG, BID
     Route: 048
     Dates: start: 20120831
  3. URBASON /GFR/ [Suspect]
     Indication: RENAL TRANSPLANT
     Dosage: 4 MG, QD
     Route: 048
     Dates: start: 20120831

REACTIONS (2)
  - Abdominal wound dehiscence [Recovered/Resolved]
  - Gastrointestinal perforation [Recovered/Resolved]
